FAERS Safety Report 18935266 (Version 2)
Quarter: 2021Q1

REPORT INFORMATION
  Report Type: Spontaneous
  Country: US (occurrence: US)
  Receive Date: 20210224
  Receipt Date: 20210308
  Transmission Date: 20210420
  Serious: No
  Sender: FDA-Public Use
  Company Number: US-HRARD-202000097

PATIENT

DRUGS (2)
  1. LYSODREN [Suspect]
     Active Substance: MITOTANE
  2. LYSODREN [Suspect]
     Active Substance: MITOTANE

REACTIONS (1)
  - Suspected product quality issue [Unknown]
